FAERS Safety Report 13917967 (Version 4)
Quarter: 2021Q3

REPORT INFORMATION
  Report Type: Spontaneous
  Country: US (occurrence: US)
  Receive Date: 20170829
  Receipt Date: 20210902
  Transmission Date: 20211014
  Serious: No
  Sender: FDA-Public Use
  Company Number: US-SA-2016SA176424

PATIENT
  Age: 52 Year
  Sex: Female
  Weight: 202 kg

DRUGS (25)
  1. HEPARIN [Concomitant]
     Active Substance: HEPARIN SODIUM
  2. LIDOCAINE/PRILOCAINE [Concomitant]
     Active Substance: LIDOCAINE\PRILOCAINE
  3. DOCUSATE [Concomitant]
     Active Substance: DOCUSATE
  4. METOPROLOL/HCTZ [Concomitant]
     Active Substance: HYDROCHLOROTHIAZIDE\METOPROLOL
  5. NITROSTAT [Concomitant]
     Active Substance: NITROGLYCERIN
  6. DIPHENHYDRAMINE. [Concomitant]
     Active Substance: DIPHENHYDRAMINE
  7. DICLOFENAC [Concomitant]
     Active Substance: DICLOFENAC
  8. LEVOTHYROXINE. [Concomitant]
     Active Substance: LEVOTHYROXINE
  9. FABRAZYME [Suspect]
     Active Substance: AGALSIDASE BETA
     Indication: FABRY^S DISEASE
     Dosage: 80 MG,QOW
     Route: 041
     Dates: start: 20160902
  10. BACTRIM [Concomitant]
     Active Substance: SULFAMETHOXAZOLE\TRIMETHOPRIM
  11. SERTRALINE [Concomitant]
     Active Substance: SERTRALINE HYDROCHLORIDE
  12. FABRAZYME [Suspect]
     Active Substance: AGALSIDASE BETA
     Dosage: 92 MG, QOW
     Route: 041
     Dates: start: 20210413
  13. EPINEPHRINE. [Concomitant]
     Active Substance: EPINEPHRINE
  14. LIPITOR [Concomitant]
     Active Substance: ATORVASTATIN CALCIUM
  15. CYCLOBENZAPRINE. [Concomitant]
     Active Substance: CYCLOBENZAPRINE
  16. LORAZEPAM. [Concomitant]
     Active Substance: LORAZEPAM
  17. OMEGA 3 [FISH OIL;VITAMIN E NOS] [Concomitant]
  18. FABRAZYME [Suspect]
     Active Substance: AGALSIDASE BETA
     Dosage: 92 MG, QOW
     Route: 041
     Dates: start: 20180115
  19. AMITRIPTYLINE [Concomitant]
     Active Substance: AMITRIPTYLINE
  20. COENZYME Q10 [Concomitant]
     Active Substance: DIETARY SUPPLEMENT\UBIDECARENONE
  21. STERILE WATER [Concomitant]
     Active Substance: WATER
  22. NORMAL SALINE [Concomitant]
     Active Substance: SODIUM CHLORIDE
  23. IBUPROFEN. [Concomitant]
     Active Substance: IBUPROFEN
  24. PANTOPRAZOLE [Concomitant]
     Active Substance: PANTOPRAZOLE
  25. LOSARTAN. [Concomitant]
     Active Substance: LOSARTAN

REACTIONS (5)
  - Malaise [Not Recovered/Not Resolved]
  - Product dose omission issue [Unknown]
  - Fatigue [Not Recovered/Not Resolved]
  - Hypertension [Recovered/Resolved]
  - Inappropriate schedule of product administration [Unknown]

NARRATIVE: CASE EVENT DATE: 201609
